FAERS Safety Report 21138144 (Version 3)
Quarter: 2022Q4

REPORT INFORMATION
  Report Type: Other
  Country: CA (occurrence: CA)
  Receive Date: 20220727
  Receipt Date: 20221018
  Transmission Date: 20230112
  Serious: Yes (Other)
  Sender: FDA-Public Use
  Company Number: CA-SAOL THERAPEUTICS-2022KAM00195

PATIENT
  Age: 13 Year
  Sex: Female
  Weight: 36 kg

DRUGS (10)
  1. CYTOGAM [Suspect]
     Active Substance: HUMAN CYTOMEGALOVIRUS IMMUNE GLOBULIN
     Indication: Immunosuppression
     Route: 042
  2. SOLIRIS [Suspect]
     Active Substance: ECULIZUMAB
     Indication: Transplant rejection
     Dosage: 300 MG
     Route: 042
  3. SOLIRIS [Suspect]
     Active Substance: ECULIZUMAB
     Indication: Off label use
     Dosage: 600 MG (MAINTENANCE DOSE)
     Route: 042
  4. THYMOCYTE IMMUNE GLOBULIN NOS [Suspect]
     Active Substance: THYMOCYTE IMMUNE GLOBULIN NOS
     Indication: Immunosuppression
     Dosage: UNK
  5. MYCOPHENOLATE MOFETIL [Suspect]
     Active Substance: MYCOPHENOLATE MOFETIL
     Indication: Immunosuppression
     Dosage: 2X/DAY
  6. PREDNISONE [Suspect]
     Active Substance: PREDNISONE
     Indication: Immunosuppression
  7. RITUXAN [Suspect]
     Active Substance: RITUXIMAB
     Indication: Immunosuppression
     Dosage: 2 DOSAGE FORMS TAKEN AS THE TOTAL DOSE
     Route: 042
  8. TACROLIMUS [Suspect]
     Active Substance: TACROLIMUS
     Indication: Immunosuppression
     Dosage: CAPSULES, 2X/DAY
     Route: 048
  9. IMMUNOGLOBULINS NOS (UNSPECIFIED) [Concomitant]
  10. UNSPECIFIED INGREDIENT [Concomitant]
     Active Substance: UNSPECIFIED INGREDIENT

REACTIONS (3)
  - Polyomavirus-associated nephropathy [Unknown]
  - Renal transplant failure [Unknown]
  - Nephrectomy [Unknown]
